FAERS Safety Report 13313359 (Version 1)
Quarter: 2017Q1

REPORT INFORMATION
  Report Type: Spontaneous
  Country: US (occurrence: US)
  Receive Date: 20170309
  Receipt Date: 20170309
  Transmission Date: 20170428
  Serious: No
  Sender: FDA-Public Use
  Company Number: US-TARO-2016TAR00985

PATIENT
  Sex: Female

DRUGS (1)
  1. FLUOCINOLONE ACETONIDE TOPICAL OIL 0.01% [Suspect]
     Active Substance: FLUOCINOLONE ACETONIDE

REACTIONS (1)
  - Drug effect incomplete [Not Recovered/Not Resolved]
